FAERS Safety Report 6714873-0 (Version None)
Quarter: 2010Q2

REPORT INFORMATION
  Report Type: 
  Country: None (occurrence: None)
  Receive Date: 20100506
  Receipt Date: 20100506
  Transmission Date: 20101027
  Serious: Yes (Other)
  Sender: FDA-Public Use
  Company Number: None

PATIENT
  Age: 11 Year
  Sex: Female
  Weight: 29.4838 kg

DRUGS (1)
  1. CHILDRENS TYLENOL 80 MG PER 1/2 TSPMC NEIL [Suspect]
     Indication: PYREXIA
     Dosage: 1 TSP 2 1/2 TSP -4 HRS PO
     Route: 048
     Dates: start: 20090925, end: 20100429

REACTIONS (10)
  - BACK PAIN [None]
  - DYSURIA [None]
  - FEELING ABNORMAL [None]
  - HEADACHE [None]
  - LETHARGY [None]
  - PAIN [None]
  - PRODUCT CONTAMINATION PHYSICAL [None]
  - PRODUCT FORMULATION ISSUE [None]
  - PRODUCT QUALITY ISSUE [None]
  - RASH [None]
